FAERS Safety Report 14181418 (Version 3)
Quarter: 2018Q1

REPORT INFORMATION
  Report Type: Report from Study
  Country: US (occurrence: US)
  Receive Date: 20171113
  Receipt Date: 20180319
  Transmission Date: 20180508
  Serious: Yes (Death, Hospitalization, Other)
  Sender: FDA-Public Use
  Company Number: PHHO2017US015444

PATIENT
  Sex: Female
  Weight: 75.8 kg

DRUGS (3)
  1. TRAMETINIB [Suspect]
     Active Substance: TRAMETINIB
     Indication: MALIGNANT MELANOMA
     Dosage: 2 MG, QD
     Route: 048
     Dates: start: 20170923, end: 20171019
  2. ZOLEDRONIC ACID. [Suspect]
     Active Substance: ZOLEDRONIC ACID
     Indication: METASTASES TO BONE
     Route: 065
  3. GSK2118436 [Suspect]
     Active Substance: DABRAFENIB
     Indication: MALIGNANT MELANOMA
     Dosage: 9150 MG, UNK
     Route: 048
     Dates: start: 20170923, end: 20171023

REACTIONS (8)
  - Anaemia [Recovered/Resolved]
  - Hypocalcaemia [Unknown]
  - Pneumonitis [Unknown]
  - Hypophosphataemia [Unknown]
  - Hypoalbuminaemia [Unknown]
  - Embolism [Recovered/Resolved]
  - Aspartate aminotransferase increased [Unknown]
  - Sepsis [Fatal]

NARRATIVE: CASE EVENT DATE: 20171023
